FAERS Safety Report 10305490 (Version 1)
Quarter: 2014Q3

REPORT INFORMATION
  Report Type: Spontaneous
  Country: US (occurrence: None)
  Receive Date: 20140711
  Receipt Date: 20140711
  Transmission Date: 20150326
  Serious: Yes (Life-Threatening, Hospitalization, Other)
  Sender: FDA-Public Use
  Company Number: 001759193A

PATIENT
  Age: 56 Year
  Sex: Female

DRUGS (2)
  1. MEANINGFUL BEAUTY DAY CREAM SPF 20 [Suspect]
     Active Substance: AVOBENZONE\OCTINOXATE\OCTISALATE\OXYBENZONE
     Dosage: ONCE DAILY DERMAL
     Dates: start: 20140418, end: 20140420
  2. MEANINGFUL BEAUTY CINDY CRAWFORD SKIN BRIGHTENING DECOLLETE AND NECK TREATMENT SPF 15 [Suspect]
     Active Substance: AVOBENZONE\OCTINOXATE\OCTISALATE\OXYBENZONE
     Dosage: ONCE DAILY DERMAL
     Dates: start: 20140418, end: 20140420

REACTIONS (8)
  - Bradycardia [None]
  - Hyperthermia [None]
  - Sepsis [None]
  - Blister [None]
  - Delirium [None]
  - Myocardial infarction [None]
  - Drug hypersensitivity [None]
  - Cheilitis [None]

NARRATIVE: CASE EVENT DATE: 20140420
